FAERS Safety Report 16139216 (Version 1)
Quarter: 2019Q2

REPORT INFORMATION
  Report Type: Spontaneous
  Country: US (occurrence: US)
  Receive Date: 20190401
  Receipt Date: 20190401
  Transmission Date: 20190711
  Serious: Yes (Other)
  Sender: FDA-Public Use
  Company Number: US-COLGATE PALMOLIVE COMPANY-20190300875

PATIENT
  Sex: Female

DRUGS (2)
  1. COLGATE TOTAL ADVANCED DEEP CLEAN [Suspect]
     Active Substance: SODIUM FLUORIDE\TRICLOSAN
     Dosage: LITTLE MORE THAN A PEA SIZED AMOUNT, BID
     Dates: start: 2017, end: 201903
  2. COLGATE TOTAL ADVANCED CLEAN [Suspect]
     Active Substance: SODIUM FLUORIDE\TRICLOSAN
     Dosage: LITTLE MORE THAN A PEA SIZED AMOUNT, BID

REACTIONS (4)
  - Leukaemia [Not Recovered/Not Resolved]
  - Hypertension [Not Recovered/Not Resolved]
  - Oral discomfort [Recovering/Resolving]
  - Tongue discomfort [Recovering/Resolving]

NARRATIVE: CASE EVENT DATE: 2012
